FAERS Safety Report 14024440 (Version 6)
Quarter: 2020Q2

REPORT INFORMATION
  Report Type: Spontaneous
  Country: US (occurrence: US)
  Receive Date: 20170928
  Receipt Date: 20200410
  Transmission Date: 20200713
  Serious: Yes (Other)
  Sender: FDA-Public Use
  Company Number: US-SA-2017SA006445

PATIENT
  Age: 66 Year
  Sex: Female
  Weight: 93.44 kg

DRUGS (15)
  1. AUBAGIO [Suspect]
     Active Substance: TERIFLUNOMIDE
     Indication: MULTIPLE SCLEROSIS
     Dosage: 14 MG,QD
     Route: 048
     Dates: start: 20161219
  2. BUMETANIDE. [Concomitant]
     Active Substance: BUMETANIDE
     Dosage: UNK UNK,UNK
     Route: 065
  3. AMLODIPINE [Concomitant]
     Active Substance: AMLODIPINE BESYLATE
     Dosage: UNK UNK,UNK
  4. VALTREX [Concomitant]
     Active Substance: VALACYCLOVIR HYDROCHLORIDE
     Dosage: UNK UNK,UNK
  5. METFORMIN [Concomitant]
     Active Substance: METFORMIN HYDROCHLORIDE
     Dosage: UNK UNK,UNK
  6. MAGNESIUM [Concomitant]
     Active Substance: MAGNESIUM
  7. ASPIRIN [ACETYLSALICYLIC ACID] [Concomitant]
     Active Substance: ASPIRIN
  8. MULTIVITAMINS [VITAMINS NOS] [Concomitant]
     Active Substance: VITAMINS
  9. GINSENG [GINSENG NOS] [Concomitant]
     Active Substance: ASIAN GINSENG
  10. GINKGO [GINKGO BILOBA] [Concomitant]
  11. VALSARTAN. [Concomitant]
     Active Substance: VALSARTAN
     Dosage: UNK UNK,UNK
  12. ASA [Concomitant]
     Active Substance: ASPIRIN
     Dosage: UNK UNK,UNK
  13. FISH OIL [Concomitant]
     Active Substance: FISH OIL
     Dosage: UNK UNK,UNK
  14. SIMVASTATIN. [Concomitant]
     Active Substance: SIMVASTATIN
     Dosage: UNK UNK,UNK
  15. CENTRUM SILVER [ASCORBIC ACID;BETACAROTENE;BIOTIN;CALCIUM;CHROMIUM;COL [Concomitant]
     Dosage: UNK UNK,UNK

REACTIONS (17)
  - Depression [Recovering/Resolving]
  - Balance disorder [Unknown]
  - Paraesthesia oral [Unknown]
  - Memory impairment [Recovering/Resolving]
  - Productive cough [Recovering/Resolving]
  - Mental impairment [Unknown]
  - Dysarthria [Unknown]
  - Decreased interest [Recovering/Resolving]
  - Head injury [Unknown]
  - Depressed mood [Recovering/Resolving]
  - Dizziness [Unknown]
  - Road traffic accident [Unknown]
  - Tongue discomfort [Unknown]
  - Constipation [Unknown]
  - Hypersomnia [Unknown]
  - Vertigo [Recovering/Resolving]
  - Nasopharyngitis [Recovering/Resolving]

NARRATIVE: CASE EVENT DATE: 20161222
